FAERS Safety Report 10277579 (Version 2)
Quarter: 2014Q3

REPORT INFORMATION
  Report Type: Spontaneous
  Country: US (occurrence: US)
  Receive Date: 20140703
  Receipt Date: 20140827
  Transmission Date: 20150326
  Serious: No
  Sender: FDA-Public Use
  Company Number: US-009507513-1407USA000638

PATIENT
  Sex: Female

DRUGS (1)
  1. NEXPLANON [Suspect]
     Active Substance: ETONOGESTREL
     Indication: CONTRACEPTION
     Dosage: 1 SINGLE ROD
     Route: 059

REACTIONS (7)
  - Product quality issue [Unknown]
  - Device deployment issue [Recovered/Resolved]
  - Surgery [Recovered/Resolved]
  - Device difficult to use [Recovered/Resolved]
  - Haemorrhage [Recovering/Resolving]
  - Device dislocation [Recovered/Resolved]
  - Medical device complication [Recovered/Resolved]

NARRATIVE: CASE EVENT DATE: 201406
